FAERS Safety Report 21341829 (Version 12)
Quarter: 2024Q1

REPORT INFORMATION
  Report Type: Spontaneous
  Country: US (occurrence: US)
  Receive Date: 20220916
  Receipt Date: 20240305
  Transmission Date: 20240410
  Serious: Yes (Hospitalization, Other)
  Sender: FDA-Public Use
  Company Number: US-BRISTOL-MYERS SQUIBB COMPANY-2022-106648

PATIENT
  Age: 89 Year
  Sex: Female

DRUGS (2)
  1. POMALYST [Suspect]
     Active Substance: POMALIDOMIDE
     Indication: Plasma cell myeloma
     Dosage: FREQ: TAKE 1 WHOLE CAPSULE BY MOUTH WITH WATER, WITHOUT FOOD AT SAME TIME DAILY FOR 21 DAYS THEN 7 D
     Route: 048
     Dates: start: 20220418
  2. POMALYST [Suspect]
     Active Substance: POMALIDOMIDE
     Indication: Plasma cell myeloma in remission
     Dosage: TAKE 1 CAPSULE WHOLE BY MOUTH WITH WATER AT LEAST 2 HRS AWAY FROM FOOD, AT SAME TIME DAILY FOR 21 DA
     Route: 048
     Dates: start: 20220418

REACTIONS (13)
  - Anxiety [Not Recovered/Not Resolved]
  - Asthenia [Not Recovered/Not Resolved]
  - Dyspnoea [Unknown]
  - Fatigue [Not Recovered/Not Resolved]
  - Diarrhoea [Not Recovered/Not Resolved]
  - Decreased appetite [Not Recovered/Not Resolved]
  - Depression [Not Recovered/Not Resolved]
  - Product dose omission in error [Recovered/Resolved]
  - Initial insomnia [Not Recovered/Not Resolved]
  - Dyspnoea exertional [Not Recovered/Not Resolved]
  - Pain [Not Recovered/Not Resolved]
  - Nasopharyngitis [Recovered/Resolved]
  - White blood cell count decreased [Recovered/Resolved]
